FAERS Safety Report 10868049 (Version 1)
Quarter: 2015Q1

REPORT INFORMATION
  Report Type: Report from Study
  Country: US (occurrence: US)
  Receive Date: 20150225
  Receipt Date: 20150225
  Transmission Date: 20150721
  Serious: Yes (Other)
  Sender: FDA-Public Use
  Company Number: US-GILEAD-2015-0138503

PATIENT
  Sex: Female

DRUGS (1)
  1. SOFOSBUVIR [Suspect]
     Active Substance: SOFOSBUVIR
     Indication: CHRONIC HEPATITIS C
     Dosage: 400 MG, UNK
     Route: 048

REACTIONS (7)
  - Anosmia [Unknown]
  - Chest pain [Unknown]
  - Headache [Unknown]
  - Ageusia [Unknown]
  - Hallucination [Unknown]
  - Pyrexia [Unknown]
  - Blindness [Unknown]
